FAERS Safety Report 8272480-5 (Version None)
Quarter: 2012Q2

REPORT INFORMATION
  Report Type: 
  Country: None (occurrence: None)
  Receive Date: 20120410
  Receipt Date: 20120404
  Transmission Date: 20120825
  Serious: Yes (Hospitalization)
  Sender: FDA-Public Use
  Company Number: ES-BAYER-2012-034273

PATIENT
  Age: 78 Year
  Sex: Male
  Weight: 60 kg

DRUGS (7)
  1. VERAPAMIL [Concomitant]
     Dosage: DAILY DOSE 240 MG
     Route: 048
     Dates: start: 20091008, end: 20110623
  2. OMEPRAZOLE [Concomitant]
     Dosage: DAILY DOSE 20 MG
     Route: 048
     Dates: start: 20020101
  3. CITALOPRAM HYDROBROMIDE [Concomitant]
     Dosage: DAILY DOSE 20 MG
     Route: 048
     Dates: start: 20080627, end: 20110623
  4. LORAZEPAM [Concomitant]
     Dosage: 1 MG, PRN
     Route: 048
     Dates: start: 20090627, end: 20110623
  5. NEXAVAR [Suspect]
     Indication: HEPATIC NEOPLASM MALIGNANT
     Dosage: 800 MG, UNK
     Route: 048
     Dates: start: 20090727, end: 20110623
  6. ENALAPRIL MALEATE [Concomitant]
     Dosage: DAILY DOSE 20 MG
     Route: 048
     Dates: start: 20110222, end: 20110625
  7. LOPERAMIDE [Concomitant]
     Dosage: 2-16 MG, PRN
     Route: 048
     Dates: start: 20100322, end: 20110623

REACTIONS (1)
  - ISCHAEMIC STROKE [None]
